FAERS Safety Report 7691940-9 (Version None)
Quarter: 2011Q3

REPORT INFORMATION
  Report Type: 
  Country: None (occurrence: None)
  Receive Date: 20110818
  Receipt Date: 20110815
  Transmission Date: 20111222
  Serious: No
  Sender: FDA-Public Use
  Company Number: US-PFIZER INC-2011188350

PATIENT
  Sex: Female

DRUGS (1)
  1. ADVIL LIQUI-GELS [Suspect]
     Dosage: 6 ADVIL A DAY

REACTIONS (5)
  - CHAPPED LIPS [None]
  - LIP DRY [None]
  - GLOSSODYNIA [None]
  - MALAISE [None]
  - TONGUE DISORDER [None]
